FAERS Safety Report 25434409 (Version 4)
Quarter: 2025Q2

REPORT INFORMATION
  Report Type: Spontaneous
  Country: US (occurrence: US)
  Receive Date: 20250613
  Receipt Date: 20250630
  Transmission Date: 20250716
  Serious: No
  Sender: PFIZER
  Company Number: US-PFIZER INC-202500118998

PATIENT
  Age: 4 Year
  Sex: Female

DRUGS (1)
  1. GENOTROPIN [Suspect]
     Active Substance: SOMATROPIN

REACTIONS (6)
  - Drug dose omission by device [Recovering/Resolving]
  - Device issue [Recovering/Resolving]
  - Device use error [Unknown]
  - Device breakage [Unknown]
  - Device physical property issue [Unknown]
  - Device defective [Unknown]
